FAERS Safety Report 19114894 (Version 1)
Quarter: 2021Q2

REPORT INFORMATION
  Report Type: Other
  Country: CA (occurrence: CA)
  Receive Date: 20210408
  Receipt Date: 20210408
  Transmission Date: 20210717
  Serious: Yes (Other)
  Sender: FDA-Public Use
  Company Number: CA-VALIDUS PHARMACEUTICALS LLC-CA-2021VAL000730

PATIENT

DRUGS (3)
  1. ACEBUTOLOL HYDROCHLORIDE. [Suspect]
     Active Substance: ACEBUTOLOL HYDROCHLORIDE
     Indication: ARRHYTHMIA
     Dosage: 100 MG, UNK
     Route: 065
  2. FUROSEMIDE. [Suspect]
     Active Substance: FUROSEMIDE
     Indication: ARRHYTHMIA
     Dosage: 20 MG, UNK
     Route: 065
  3. ACEBUTOLOL HYDROCHLORIDE. [Suspect]
     Active Substance: ACEBUTOLOL HYDROCHLORIDE
     Indication: ARRHYTHMIA
     Dosage: 100 MG, QD
     Route: 065

REACTIONS (9)
  - Blister [Unknown]
  - Rosacea [Unknown]
  - Dyspnoea [Unknown]
  - Swelling [Unknown]
  - Feeling abnormal [Unknown]
  - Hypersensitivity [Unknown]
  - Swelling face [Unknown]
  - Product substitution issue [Unknown]
  - Peripheral swelling [Unknown]

NARRATIVE: CASE EVENT DATE: 201801
